FAERS Safety Report 5233180-9 (Version None)
Quarter: 2007Q1

REPORT INFORMATION
  Report Type: 
  Country: None (occurrence: None)
  Receive Date: 20070207
  Receipt Date: 20070131
  Transmission Date: 20070707
  Serious: Yes (Other)
  Sender: FDA-Public Use
  Company Number: FR-PFIZER INC-2007008528

PATIENT
  Sex: Male

DRUGS (4)
  1. TAHOR [Suspect]
     Dates: start: 20070101, end: 20070131
  2. LOVENOX [Concomitant]
  3. PLAVIX [Concomitant]
  4. PERINDOPRIL ERBUMINE [Concomitant]

REACTIONS (4)
  - NAUSEA [None]
  - VERTIGO [None]
  - VISION BLURRED [None]
  - VOMITING [None]
